FAERS Safety Report 8811418 (Version 2)
Quarter: 2012Q4

REPORT INFORMATION
  Report Type: Report from Study
  Country: FR (occurrence: FR)
  Receive Date: 20120927
  Receipt Date: 20121018
  Transmission Date: 20130627
  Serious: Yes (Death)
  Sender: FDA-Public Use
  Company Number: FR-PFIZER INC-2012236989

PATIENT
  Age: 76 Year
  Sex: Female
  Weight: 44.8 kg

DRUGS (5)
  1. CRIZOTINIB [Suspect]
     Indication: LUNG CARCINOMA CELL TYPE UNSPECIFIED STAGE IV
     Dosage: 250 mg, 2x/day
     Route: 048
     Dates: start: 20120720
  2. BARACLUDE [Concomitant]
     Indication: HEPATITIS B
     Dosage: 0.5 mg, 1x/day
     Route: 048
     Dates: start: 20120705
  3. KEPPRA [Concomitant]
     Indication: EPILEPSY
     Dosage: 500 mg, in 2 intakes
     Route: 048
     Dates: start: 20120111
  4. ZEFFIX [Concomitant]
     Indication: HEPATITIS B
     Dosage: 100 mg, 1x/day
     Route: 048
     Dates: start: 20120112
  5. AMLODIPINE [Concomitant]
     Indication: HYPERTENSION
     Dosage: 5 mg, 1x/day
     Route: 048
     Dates: start: 20120705

REACTIONS (1)
  - Death [Fatal]
